FAERS Safety Report 9687626 (Version 1)
Quarter: 2013Q4

REPORT INFORMATION
  Report Type: Spontaneous
  Country: DE (occurrence: DE)
  Receive Date: 20131114
  Receipt Date: 20131114
  Transmission Date: 20140711
  Serious: Yes (Other)
  Sender: FDA-Public Use
  Company Number: DE-SHIRE-ALL1-2013-07690

PATIENT
  Sex: Male

DRUGS (2)
  1. ELVANSE [Suspect]
     Indication: ATTENTION DEFICIT/HYPERACTIVITY DISORDER
     Dosage: UNK, UNKNOWN
     Route: 048
  2. STRATTERA [Concomitant]
     Indication: ATTENTION DEFICIT/HYPERACTIVITY DISORDER
     Dosage: UNK, UNKNOWN
     Route: 065

REACTIONS (3)
  - Psychotic disorder [Recovering/Resolving]
  - Obsessive thoughts [Not Recovered/Not Resolved]
  - Insomnia [Recovering/Resolving]
